FAERS Safety Report 14641359 (Version 2)
Quarter: 2018Q3

REPORT INFORMATION
  Report Type: Spontaneous
  Country: JP (occurrence: JP)
  Receive Date: 20180315
  Receipt Date: 20180717
  Transmission Date: 20181010
  Serious: Yes (Hospitalization, Other)
  Sender: FDA-Public Use
  Company Number: JP-BRISTOL-MYERS SQUIBB COMPANY-BMS-2018-023899

PATIENT
  Age: 77 Year
  Sex: Male
  Weight: 56.9 kg

DRUGS (3)
  1. OPDIVO [Suspect]
     Active Substance: NIVOLUMAB
     Indication: NON-SMALL CELL LUNG CANCER RECURRENT
     Dosage: 25 MG/M2, Q2WK
     Route: 041
  2. MECOBALAMIN [Concomitant]
     Active Substance: METHYLCOBALAMIN
     Indication: PRODUCT USED FOR UNKNOWN INDICATION
     Route: 065
  3. LOXOPROFEN [Concomitant]
     Active Substance: LOXOPROFEN
     Indication: PRODUCT USED FOR UNKNOWN INDICATION
     Route: 065

REACTIONS (12)
  - Rash pustular [Unknown]
  - Thyroid function test abnormal [Unknown]
  - Skin atrophy [Unknown]
  - Hypoaesthesia [Recovering/Resolving]
  - Rash [Unknown]
  - Skin exfoliation [Unknown]
  - Ocular hyperaemia [Recovering/Resolving]
  - Eczema asteatotic [Unknown]
  - Pyrexia [Recovering/Resolving]
  - Hyperthyroidism [Unknown]
  - Nail disorder [Unknown]
  - Onycholysis [Unknown]
